FAERS Safety Report 7394804-3 (Version None)
Quarter: 2011Q2

REPORT INFORMATION
  Report Type: 
  Country: None (occurrence: None)
  Receive Date: 20110405
  Receipt Date: 20110325
  Transmission Date: 20111010
  Serious: Yes (Hospitalization)
  Sender: FDA-Public Use
  Company Number: A0773111A

PATIENT
  Age: 63 Year
  Sex: Female
  Weight: 104.5 kg

DRUGS (9)
  1. ASPIRIN [Concomitant]
  2. GLYNASE [Concomitant]
  3. AVANDIA [Suspect]
     Dosage: 8MG PER DAY
     Route: 048
     Dates: start: 20000111, end: 20070505
  4. DIOVAN [Concomitant]
  5. LASIX [Concomitant]
     Dates: start: 20030101, end: 20080101
  6. LIPITOR [Concomitant]
  7. ALTACE [Concomitant]
  8. GLUCOPHAGE [Concomitant]
  9. SIMVASTATIN [Concomitant]
     Dates: start: 20040101

REACTIONS (7)
  - CARDIAC DISORDER [None]
  - CARDIAC FAILURE CONGESTIVE [None]
  - FLUID RETENTION [None]
  - MYOCARDIAL INFARCTION [None]
  - WEIGHT INCREASED [None]
  - PLEURAL EFFUSION [None]
  - CORONARY ARTERY DISEASE [None]
